FAERS Safety Report 6529353-5 (Version None)
Quarter: 2009Q4

REPORT INFORMATION
  Report Type: 
  Country: None (occurrence: None)
  Receive Date: 20091231
  Receipt Date: 20091216
  Transmission Date: 20100525
  Serious: Yes (Other)
  Sender: FDA-Public Use
  Company Number: 2007AL004688

PATIENT
  Age: 30 Year
  Sex: Female

DRUGS (2)
  1. GABAPENTIN [Suspect]
     Indication: EPILEPSY
     Dosage: 600 MG;TID;PO
     Route: 048
     Dates: start: 20030101
  2. LEVETIRACETAM [Concomitant]

REACTIONS (2)
  - CEREBROSCLEROSIS [None]
  - OSTEOPENIA [None]
